FAERS Safety Report 9687945 (Version 1)
Quarter: 2013Q4

REPORT INFORMATION
  Report Type: Spontaneous
  Country: CA (occurrence: None)
  Receive Date: 20131112
  Receipt Date: 20131112
  Transmission Date: 20140711
  Serious: Yes (Hospitalization)
  Sender: FDA-Public Use
  Company Number: 2013AP009611

PATIENT
  Age: 57 Year
  Sex: Male

DRUGS (8)
  1. ATENOLOL (ATENOLOL) [Suspect]
     Indication: INTENTIONAL OVERDOSE
  2. AMLODIPINE (AMLODIPINE) [Concomitant]
  3. METHYLPHENIDATE [Concomitant]
  4. LAMOTRIGINE (LAMOTRIGINE) [Concomitant]
  5. LITHIUM (LITHIUM) [Suspect]
  6. LEVOTHYROXINE SODIUM (LEVOTHRYOXINE SODIUM) [Concomitant]
  7. CLONAZEPAM (CLONAZEPAM) [Concomitant]
  8. MIRTAZAPINE (MIRTAZAPINE) [Concomitant]

REACTIONS (6)
  - Intentional overdose [None]
  - Toxicity to various agents [None]
  - Depressed level of consciousness [None]
  - Hypotension [None]
  - Bradycardia [None]
  - Suicide attempt [None]
